FAERS Safety Report 8144589-8 (Version None)
Quarter: 2012Q1

REPORT INFORMATION
  Report Type: 
  Country: None (occurrence: None)
  Receive Date: 20120217
  Receipt Date: 20120203
  Transmission Date: 20120608
  Serious: Yes (Hospitalization)
  Sender: FDA-Public Use
  Company Number: ES-WATSON-2012-02010

PATIENT
  Age: 49 Year
  Sex: Male

DRUGS (1)
  1. MORPHINE SULFATE [Suspect]
     Indication: MUSCULOSKELETAL PAIN
     Dosage: 3 MG IN 250 ML
     Route: 008

REACTIONS (5)
  - HYPOTENSION [None]
  - DRUG ADMINISTRATION ERROR [None]
  - DEPRESSED LEVEL OF CONSCIOUSNESS [None]
  - ACCIDENTAL OVERDOSE [None]
  - OXYGEN SATURATION DECREASED [None]
